FAERS Safety Report 25829158 (Version 2)
Quarter: 2025Q4

REPORT INFORMATION
  Report Type: Spontaneous
  Country: US (occurrence: US)
  Receive Date: 20250922
  Receipt Date: 20251114
  Transmission Date: 20260118
  Serious: No
  Sender: SANOFI AVENTIS
  Company Number: US-SA-2025SA278459

PATIENT
  Age: 61 Year
  Sex: Female

DRUGS (2)
  1. DUPIXENT [Suspect]
     Active Substance: DUPILUMAB
     Indication: Asthma
     Dosage: 600 MG, 1X
     Route: 058
     Dates: start: 20250424, end: 20250424
  2. DUPIXENT [Suspect]
     Active Substance: DUPILUMAB
     Dosage: 300 MG, QOW
     Route: 058
     Dates: start: 202505

REACTIONS (8)
  - Dysphonia [Unknown]
  - Weight decreased [Unknown]
  - Blood cholesterol increased [Unknown]
  - Asthma [Recovered/Resolved]
  - Cough [Recovering/Resolving]
  - Dyspnoea [Recovering/Resolving]
  - Oxygen saturation decreased [Recovering/Resolving]
  - Wheezing [Unknown]

NARRATIVE: CASE EVENT DATE: 20250101
